FAERS Safety Report 7994782-X (Version None)
Quarter: 2011Q4

REPORT INFORMATION
  Report Type: 
  Country: None (occurrence: None)
  Receive Date: 20111220
  Receipt Date: 20111215
  Transmission Date: 20120403
  Serious: Yes (Hospitalization)
  Sender: FDA-Public Use
  Company Number: FR-ROCHE-1004620

PATIENT
  Sex: Male
  Weight: 86 kg

DRUGS (8)
  1. PREDNISOLONE SODIUM [Suspect]
     Indication: TRANSPLANT REJECTION
     Route: 002
     Dates: start: 20110723
  2. ROCEPHIN [Concomitant]
     Dates: start: 20111011
  3. EVEROLIMUS [Suspect]
     Indication: TRANSPLANT REJECTION
     Route: 002
     Dates: start: 20110902
  4. MYCOPHENOLATE MOFETIL (CELLCEPT) [Suspect]
     Dosage: DOSE REDUCED
     Route: 048
     Dates: start: 20110908
  5. OFLOXACIN [Concomitant]
     Dates: start: 20111012
  6. MYCOPHENOLATE MOFETIL (CELLCEPT) [Suspect]
     Route: 048
     Dates: start: 20111011
  7. MYCOPHENOLATE MOFETIL (CELLCEPT) [Suspect]
     Indication: TRANSPLANT REJECTION
     Route: 002
     Dates: start: 20110722
  8. OFLOXACIN [Concomitant]
     Dates: start: 20111011

REACTIONS (1)
  - FEBRILE NEUTROPENIA [None]
